FAERS Safety Report 14694943 (Version 1)
Quarter: 2018Q1

REPORT INFORMATION
  Report Type: Spontaneous
  Country: SI (occurrence: SI)
  Receive Date: 20180329
  Receipt Date: 20180329
  Transmission Date: 20180509
  Serious: Yes (Other)
  Sender: FDA-Public Use
  Company Number: SI-PFIZER INC-2018123264

PATIENT
  Age: 52 Year
  Sex: Female

DRUGS (4)
  1. PARICALCITOL. [Suspect]
     Active Substance: PARICALCITOL
     Dosage: 2 UG, 1X/DAY
  2. PARICALCITOL. [Suspect]
     Active Substance: PARICALCITOL
     Indication: PROTEINURIA
     Dosage: 4 UG, 1X/DAY
  3. PARICALCITOL. [Suspect]
     Active Substance: PARICALCITOL
     Dosage: 1 UG, 1X/DAY
  4. AGALSIDASE ALFA [Concomitant]
     Active Substance: AGALSIDASE ALFA
     Dosage: UNK

REACTIONS (2)
  - Renal impairment [Recovered/Resolved]
  - Cardiac dysfunction [Recovered/Resolved]
